FAERS Safety Report 4533425-4 (Version None)
Quarter: 2004Q4

REPORT INFORMATION
  Report Type: 
  Country: None (occurrence: None)
  Receive Date: 20041221
  Receipt Date: 20041213
  Transmission Date: 20050328
  Serious: Yes (Other)
  Sender: FDA-Public Use
  Company Number: US-ROCHE-389237

PATIENT
  Sex: Female

DRUGS (1)
  1. ACCUTANE [Suspect]
     Route: 048
     Dates: start: 19840615, end: 19840615

REACTIONS (3)
  - PREGNANCY [None]
  - PREMATURE MENOPAUSE [None]
  - SUICIDE ATTEMPT [None]
